FAERS Safety Report 4885038-2 (Version None)
Quarter: 2006Q1

REPORT INFORMATION
  Report Type: 
  Country: None (occurrence: None)
  Receive Date: 20060119
  Receipt Date: 20051005
  Transmission Date: 20060701
  Serious: Yes (Hospitalization)
  Sender: FDA-Public Use
  Company Number: US-MERCK-0510USA05584

PATIENT
  Age: 69 Year
  Sex: Female
  Weight: 57 kg

DRUGS (12)
  1. VIOXX [Suspect]
     Indication: ARTHRALGIA
     Route: 048
     Dates: start: 19990501, end: 20040901
  2. ESTRADERM [Concomitant]
     Route: 065
  3. ASPIRIN [Concomitant]
     Route: 065
  4. DIGOXIN [Concomitant]
     Route: 065
  5. ISOSORBIDE [Concomitant]
     Route: 065
  6. LIPITOR [Concomitant]
     Route: 065
  7. PRINIVIL [Concomitant]
     Route: 065
  8. SPIRONOLACTONE [Concomitant]
     Route: 065
  9. NITROGLYCERIN [Concomitant]
     Route: 060
  10. ULTRAM [Concomitant]
     Route: 065
  11. TYLENOL W/ CODEINE NO. 3 [Concomitant]
     Route: 065
  12. FUROSEMIDE [Concomitant]
     Route: 065

REACTIONS (3)
  - CHRONIC OBSTRUCTIVE PULMONARY DISEASE [None]
  - DEPRESSION [None]
  - MYOCARDIAL INFARCTION [None]
